FAERS Safety Report 9864969 (Version 2)
Quarter: 2014Q3

REPORT INFORMATION
  Report Type: Spontaneous
  Country: US (occurrence: US)
  Receive Date: 20140203
  Receipt Date: 20140813
  Transmission Date: 20150326
  Serious: Yes (Other)
  Sender: FDA-Public Use
  Company Number: US-AMGEN-USASP2014005185

PATIENT
  Age: 48 Year
  Sex: Female

DRUGS (3)
  1. HUMIRA [Concomitant]
     Active Substance: ADALIMUMAB
     Dosage: UNK UNK, ONE INJECTION WEEKLY
     Route: 065
     Dates: start: 20140303
  2. ENBREL [Suspect]
     Active Substance: ETANERCEPT
     Indication: RHEUMATOID ARTHRITIS
     Dosage: 50 MG, QWK
     Route: 065
     Dates: start: 20140120, end: 20140120
  3. METHOTREXATE [Concomitant]
     Active Substance: METHOTREXATE
     Dosage: UNK  6 PILLS WEEKLY
     Route: 065

REACTIONS (14)
  - Rash erythematous [Recovered/Resolved]
  - Local swelling [Recovered/Resolved]
  - Escherichia pyelonephritis [Recovered/Resolved]
  - Pharyngeal oedema [Recovered/Resolved]
  - Labyrinthitis [Recovered/Resolved]
  - Rotator cuff syndrome [Not Recovered/Not Resolved]
  - Bronchitis [Recovered/Resolved]
  - Cystitis escherichia [Recovered/Resolved]
  - Dehydration [Recovered/Resolved]
  - Hearing impaired [Recovered/Resolved]
  - Pharyngitis streptococcal [Recovered/Resolved]
  - Musculoskeletal pain [Not Recovered/Not Resolved]
  - Pain [Not Recovered/Not Resolved]
  - Arthralgia [Not Recovered/Not Resolved]

NARRATIVE: CASE EVENT DATE: 20140120
